APPROVED DRUG PRODUCT: ERLOTINIB HYDROCHLORIDE
Active Ingredient: ERLOTINIB HYDROCHLORIDE
Strength: EQ 150MG BASE
Dosage Form/Route: TABLET;ORAL
Application: A214719 | Product #003 | TE Code: AB
Applicant: ALEMBIC PHARMACEUTICALS LTD
Approved: Jul 8, 2021 | RLD: No | RS: No | Type: RX